FAERS Safety Report 19464947 (Version 7)
Quarter: 2025Q3

REPORT INFORMATION
  Report Type: Report from Study
  Country: GB (occurrence: GB)
  Receive Date: 20210626
  Receipt Date: 20250714
  Transmission Date: 20251021
  Serious: Yes (Hospitalization, Other)
  Sender: TAKEDA
  Company Number: GB-TAKEDA-2021TUS039879

PATIENT
  Sex: Female

DRUGS (2)
  1. VEDOLIZUMAB [Suspect]
     Active Substance: VEDOLIZUMAB
     Indication: Crohn^s disease
  2. VEDOLIZUMAB [Suspect]
     Active Substance: VEDOLIZUMAB
     Indication: Colitis ulcerative

REACTIONS (8)
  - Intestinal obstruction [Unknown]
  - Crohn^s disease [Unknown]
  - Gastrointestinal pain [Unknown]
  - Abdominal distension [Unknown]
  - Injection site extravasation [Unknown]
  - Injection site pain [Unknown]
  - Device issue [Unknown]
  - Off label use [Unknown]
